FAERS Safety Report 8400450-2 (Version None)
Quarter: 2012Q2

REPORT INFORMATION
  Report Type: 
  Country: None (occurrence: None)
  Receive Date: 20120531
  Receipt Date: 20120524
  Transmission Date: 20120825
  Serious: Yes (Hospitalization)
  Sender: FDA-Public Use
  Company Number: GB-TEVA-340090USA

PATIENT
  Sex: Female

DRUGS (3)
  1. TREANDA [Suspect]
     Indication: MULTIPLE MYELOMA
     Dosage: 110 MG CYCLIC
     Route: 042
     Dates: start: 20120313
  2. THALIDOMIDE [Suspect]
     Indication: MULTIPLE MYELOMA
     Dosage: 50 MG
     Route: 048
     Dates: start: 20120313
  3. DEXAMETHASONE [Suspect]
     Indication: MULTIPLE MYELOMA
     Dosage: 20 MG CYCLIC
     Route: 048
     Dates: start: 20120313

REACTIONS (1)
  - LOWER RESPIRATORY TRACT INFECTION [None]
